FAERS Safety Report 7909819-3 (Version None)
Quarter: 2011Q4

REPORT INFORMATION
  Report Type: 
  Country: None (occurrence: None)
  Receive Date: 20111111
  Receipt Date: 20111109
  Transmission Date: 20120403
  Serious: Yes (Other)
  Sender: FDA-Public Use
  Company Number: FR-MERCK-1110FRA00086

PATIENT
  Age: 57 Year
  Sex: Male

DRUGS (5)
  1. ISENTRESS [Suspect]
     Indication: HIV INFECTION
     Route: 048
     Dates: start: 20110222, end: 20110412
  2. ZOLPIDEM TARTRATE [Concomitant]
     Route: 065
     Dates: start: 20110222, end: 20110412
  3. AMLODIPINE BESYLATE AND VALSARTAN [Concomitant]
     Route: 065
     Dates: start: 20110222, end: 20110412
  4. BISOPROLOL FUMARATE [Concomitant]
     Route: 065
     Dates: start: 20110222, end: 20110412
  5. ABACAVIR SULFATE AND LAMIVUDINE [Suspect]
     Indication: HIV INFECTION
     Route: 048
     Dates: start: 20110222, end: 20110412

REACTIONS (8)
  - FACE OEDEMA [None]
  - PRURITUS [None]
  - HYPERSENSITIVITY [None]
  - PHARYNGITIS [None]
  - RASH MACULO-PAPULAR [None]
  - APHTHOUS STOMATITIS [None]
  - MOUTH ULCERATION [None]
  - EOSINOPHILIA [None]
